FAERS Safety Report 4962095-6 (Version None)
Quarter: 2006Q2

REPORT INFORMATION
  Report Type: 
  Country: None (occurrence: None)
  Receive Date: 20060403
  Receipt Date: 20060403
  Transmission Date: 20061013
  Serious: Yes (Hospitalization, Other)
  Sender: FDA-Public Use
  Company Number: None

PATIENT
  Sex: Male
  Weight: 73 kg

DRUGS (6)
  1. L-ASPARAGINASE [Suspect]
     Indication: ACUTE LYMPHOCYTIC LEUKAEMIA
     Dosage: 69000 UNIT
     Dates: start: 20060225, end: 20060318
  2. VINCRISTINE SULFATE [Suspect]
     Dosage: 8 MG
     Dates: start: 20060225, end: 20060318
  3. G-CSF (FILGRASTIM, AMGEN) [Suspect]
     Dosage: 4050 MCG
     Dates: start: 20060225, end: 20060318
  4. ALLOPURINOL [Suspect]
     Dosage: 3000 MG
     Dates: start: 20060225, end: 20060318
  5. CYCLOPHOSPHAMIDE [Suspect]
     Dosage: 2300 MG
     Dates: start: 20060225, end: 20060225
  6. DAUNORUBICIN HCL [Suspect]
     Dosage: 450 MG
     Dates: start: 20060225, end: 20060227

REACTIONS (11)
  - BACTERAEMIA [None]
  - BLOOD ELECTROLYTES ABNORMAL [None]
  - CATHETER RELATED COMPLICATION [None]
  - CATHETER SITE RELATED REACTION [None]
  - ENTEROCOCCAL INFECTION [None]
  - INFECTIVE THROMBOSIS [None]
  - NECK PAIN [None]
  - ODYNOPHAGIA [None]
  - PHARYNGOLARYNGEAL PAIN [None]
  - STAPHYLOCOCCAL INFECTION [None]
  - THROMBOSIS [None]
